FAERS Safety Report 23858521 (Version 3)
Quarter: 2024Q2

REPORT INFORMATION
  Report Type: Spontaneous
  Country: JP (occurrence: JP)
  Receive Date: 20240515
  Receipt Date: 20240624
  Transmission Date: 20240716
  Serious: Yes (Hospitalization, Other)
  Sender: FDA-Public Use
  Company Number: JP-GENMAB-2024-01596

PATIENT
  Age: 8 Decade
  Sex: Female

DRUGS (13)
  1. EPKINLY [Suspect]
     Active Substance: EPCORITAMAB-BYSP
     Indication: Diffuse large B-cell lymphoma
     Dosage: 0.16 MILLIGRAM, SINGLE
     Route: 058
     Dates: start: 20240325, end: 20240325
  2. EPKINLY [Suspect]
     Active Substance: EPCORITAMAB-BYSP
     Dosage: 0.8 MILLIGRAM, SINGLE
     Route: 058
     Dates: start: 20240401, end: 20240401
  3. EPKINLY [Suspect]
     Active Substance: EPCORITAMAB-BYSP
     Dosage: 48 MILLIGRAM, WEEKLY
     Route: 058
     Dates: start: 20240408, end: 20240515
  4. SULFAMETHOXAZOLE\TRIMETHOPRIM [Concomitant]
     Active Substance: SULFAMETHOXAZOLE\TRIMETHOPRIM
     Indication: Infection prophylaxis
     Dosage: 0.5 TABLET, QD, AFTER BREAKFAST
     Dates: start: 20240228
  5. ESOMEPRAZOLE [Concomitant]
     Active Substance: ESOMEPRAZOLE
     Indication: Prophylaxis against gastrointestinal ulcer
     Dosage: 1 CAPSULE, QD, AFTER BREAKFAST
     Dates: start: 20240228
  6. DEXTROMETHORPHAN HYDROBROMIDE\LYSOZYME HYDROCHLORIDE\POTASSIUM CRESOLS [Concomitant]
     Active Substance: DEXTROMETHORPHAN HYDROBROMIDE\LYSOZYME HYDROCHLORIDE\POTASSIUM CRESOLSULFONATE
     Indication: Cough
     Dosage: 0.15 GRAM, TID, AFTER BREAKFAST, LUNCH AND DINNER
     Dates: start: 20240228
  7. VALGANCICLOVIR HYDROCHLORIDE [Concomitant]
     Active Substance: VALGANCICLOVIR HYDROCHLORIDE
     Indication: Decreased immune responsiveness
     Dosage: 1 TABLET, QD, AFTER BREAKFAST
     Dates: start: 20240228
  8. MONTELUKAST OD [Concomitant]
     Indication: Rhinitis
     Dosage: 1 TABLET, QD, AT BEDTIME
     Dates: start: 20240228
  9. MONTELUKAST OD [Concomitant]
     Indication: Asthma
  10. ITRACONAZOLE [Concomitant]
     Active Substance: ITRACONAZOLE
     Indication: Decreased immune responsiveness
     Dosage: 2 TABLETS, QD, IMMEDIATELY AFTER LUNCH
     Dates: start: 20240228
  11. ITRACONAZOLE [Concomitant]
     Active Substance: ITRACONAZOLE
     Indication: Infection prophylaxis
  12. MAGNESIUM OXIDE [Concomitant]
     Active Substance: MAGNESIUM OXIDE
     Indication: Constipation
     Dosage: 1 TABLET, BID, AFTER BREAKFAST AND DINNER
     Dates: start: 20240228
  13. BISOPROLOL FUMARATE [Concomitant]
     Active Substance: BISOPROLOL FUMARATE
     Indication: Atrial fibrillation
     Dosage: 2 TABLETS, QD, AFTER BREAKFAST
     Dates: start: 20240228

REACTIONS (1)
  - Enterocolitis viral [Recovering/Resolving]

NARRATIVE: CASE EVENT DATE: 20240502
